FAERS Safety Report 5659885-3 (Version None)
Quarter: 2008Q1

REPORT INFORMATION
  Report Type: 
  Country: None (occurrence: None)
  Receive Date: 20080311
  Receipt Date: 20070801
  Transmission Date: 20080703
  Serious: No
  Sender: FDA-Public Use
  Company Number: US-BAYER-200712469BCC

PATIENT
  Age: 54 Year
  Sex: Male
  Weight: 79 kg

DRUGS (6)
  1. ALEVE [Suspect]
     Indication: BACK PAIN
     Dosage: TOTAL DAILY DOSE: 220 MG  UNIT DOSE: 220 MG
     Route: 048
     Dates: start: 20070727
  2. ALEVE [Suspect]
     Route: 048
  3. VYTORIN [Concomitant]
  4. PROTONIX [Concomitant]
  5. ASPIRIN [Concomitant]
  6. TYLENOL [Concomitant]

REACTIONS (2)
  - HYPERSENSITIVITY [None]
  - RASH [None]
